FAERS Safety Report 6840359-9 (Version None)
Quarter: 2010Q3

REPORT INFORMATION
  Report Type: 
  Country: None (occurrence: None)
  Receive Date: 20100713
  Receipt Date: 20100713
  Transmission Date: 20110219
  Serious: Yes (Life-Threatening, Other)
  Sender: FDA-Public Use
  Company Number: None

PATIENT
  Sex: Male
  Weight: 72.5755 kg

DRUGS (1)
  1. JANUVIA [Suspect]
     Dosage: 50MG TWICE A DAY PO
     Route: 048
     Dates: start: 20090919, end: 20100712

REACTIONS (1)
  - HEART RATE INCREASED [None]
